FAERS Safety Report 4468404-9 (Version None)
Quarter: 2004Q4

REPORT INFORMATION
  Report Type: 
  Country: None (occurrence: None)
  Receive Date: 20041004
  Receipt Date: 20040922
  Transmission Date: 20050328
  Serious: Yes (Hospitalization, Other)
  Sender: FDA-Public Use
  Company Number: 205312

PATIENT
  Age: 69 Year
  Sex: Female

DRUGS (1)
  1. CATHFLO ACTIVASE [Suspect]
     Indication: CATHETER RELATED COMPLICATION
     Dosage: 2 MG, SINGLE, INTRACATHETER
     Dates: start: 20040311

REACTIONS (1)
  - ATRIAL FIBRILLATION [None]
